FAERS Safety Report 9169899 (Version 1)
Quarter: 2013Q1

REPORT INFORMATION
  Report Type: Spontaneous
  Country: US (occurrence: None)
  Receive Date: 20130314
  Receipt Date: 20130314
  Transmission Date: 20140127
  Serious: Yes (Hospitalization, Other)
  Sender: FDA-Public Use
  Company Number: None

PATIENT
  Age: 34 Year
  Sex: Female
  Weight: 52.16 kg

DRUGS (2)
  1. BUPROPION XL [Suspect]
     Route: 048
     Dates: start: 20121001, end: 20130201
  2. AMITRIPTYLINE [Suspect]
     Route: 048
     Dates: start: 20121101, end: 20130201

REACTIONS (1)
  - Convulsion [None]
